FAERS Safety Report 17527026 (Version 1)
Quarter: 2020Q1

REPORT INFORMATION
  Report Type: Spontaneous
  Country: CA (occurrence: CA)
  Receive Date: 20200311
  Receipt Date: 20200311
  Transmission Date: 20200409
  Serious: Yes (Life-Threatening)
  Sender: FDA-Public Use
  Company Number: CA-ICU MEDICAL, INC.-ICU2020CA00008

PATIENT

DRUGS (3)
  1. GLYCEROL/MAGNESIUM SULFATE/PHENOL [Suspect]
     Active Substance: GLYCERIN\MAGNESIUM SULFATE\PHENOL
     Indication: MINERAL SUPPLEMENTATION
     Dosage: 1 DOSAGE FORM, Q3WEEKS
     Route: 042
  2. SODIUM CHLORIDE INJECTION [Suspect]
     Active Substance: SODIUM CHLORIDE
     Indication: MEDICATION DILUTION
     Dosage: 1 DOSAGE FORM, Q3WEEKS
     Route: 042
  3. PACLITAXEL. [Suspect]
     Active Substance: PACLITAXEL
     Indication: OVARIAN CANCER
     Dosage: UNK, CYCLIC
     Route: 042

REACTIONS (1)
  - Anaphylactic reaction [Unknown]
